FAERS Safety Report 6916775-3 (Version None)
Quarter: 2010Q3

REPORT INFORMATION
  Report Type: 
  Country: None (occurrence: None)
  Receive Date: 20100809
  Receipt Date: 20100809
  Transmission Date: 20110219
  Serious: No
  Sender: FDA-Public Use
  Company Number: None

PATIENT
  Sex: Male

DRUGS (2)
  1. FUROSEMIDE 80MG RANBAXY [Suspect]
     Indication: POLYURIA
     Dosage: 120 2T PO BID PO
     Route: 048
     Dates: start: 20100726, end: 20100808
  2. FUROSEMIDE 80MG RANBAXY [Suspect]
     Indication: RENAL TRANSPLANT
     Dosage: 120 2T PO BID PO
     Route: 048
     Dates: start: 20100726, end: 20100808

REACTIONS (3)
  - DYSURIA [None]
  - OEDEMA PERIPHERAL [None]
  - PRODUCT SUBSTITUTION ISSUE [None]
